FAERS Safety Report 17970720 (Version 1)
Quarter: 2020Q3

REPORT INFORMATION
  Report Type: Spontaneous
  Country: IT (occurrence: IT)
  Receive Date: 20200701
  Receipt Date: 20200701
  Transmission Date: 20201103
  Serious: Yes (Hospitalization)
  Sender: FDA-Public Use
  Company Number: NVSC2020IT183411

PATIENT
  Age: 50 Year
  Sex: Female

DRUGS (1)
  1. VOLTFAST [Suspect]
     Active Substance: DICLOFENAC
     Indication: PAIN
     Dosage: 1 DF
     Route: 048
     Dates: start: 20200522, end: 20200522

REACTIONS (3)
  - Tongue oedema [Recovering/Resolving]
  - Adverse drug reaction [Recovering/Resolving]
  - Throat tightness [Recovering/Resolving]

NARRATIVE: CASE EVENT DATE: 20200522
